FAERS Safety Report 24075030 (Version 1)
Quarter: 2024Q3

REPORT INFORMATION
  Report Type: Report from Study
  Country: CN (occurrence: CN)
  Receive Date: 20240710
  Receipt Date: 20240710
  Transmission Date: 20241016
  Serious: Yes (Other)
  Sender: NOVARTIS
  Company Number: CN-002147023-NVSC2024CN139799

PATIENT
  Sex: Male

DRUGS (1)
  1. LEQVIO [Suspect]
     Active Substance: INCLISIRAN SODIUM
     Indication: Hyperlipidaemia
     Dosage: 1 DOSAGE FORM
     Route: 058
     Dates: start: 20240627, end: 20240627

REACTIONS (9)
  - Vagus nerve disorder [Unknown]
  - Dizziness [Unknown]
  - Malaise [Unknown]
  - Hypoaesthesia [Unknown]
  - Pharyngeal hypoaesthesia [Unknown]
  - Head discomfort [Unknown]
  - Chest discomfort [Unknown]
  - Palpitations [Unknown]
  - Hyperhidrosis [Unknown]

NARRATIVE: CASE EVENT DATE: 20240630
